FAERS Safety Report 20484185 (Version 2)
Quarter: 2022Q1

REPORT INFORMATION
  Report Type: Other
  Country: JP (occurrence: None)
  Receive Date: 20220217
  Receipt Date: 20220228
  Transmission Date: 20220424
  Serious: Yes (Hospitalization)
  Sender: FDA-Public Use
  Company Number: JP-ROCHE-3023392

PATIENT
  Age: 64 Year
  Sex: Male

DRUGS (2)
  1. CAPECITABINE [Suspect]
     Active Substance: CAPECITABINE
     Indication: Rectal cancer
     Dosage: ON DAY, DAYS 1 TO 14
     Route: 048
  2. OXALIPLATIN [Concomitant]
     Active Substance: OXALIPLATIN
     Indication: Rectal cancer
     Dosage: ON DAY 1 EVERY 3 WEEKS

REACTIONS (9)
  - Febrile neutropenia [Unknown]
  - Diarrhoea [Unknown]
  - Stomatitis [Unknown]
  - Decreased appetite [Unknown]
  - Ileal ulcer [Recovering/Resolving]
  - Gastric ulcer [Recovering/Resolving]
  - Oesophageal stenosis [Unknown]
  - Large intestinal stenosis [Recovering/Resolving]
  - Large intestinal ulcer [Recovering/Resolving]
